FAERS Safety Report 10554594 (Version 1)
Quarter: 2014Q4

REPORT INFORMATION
  Report Type: Spontaneous
  Country: US (occurrence: None)
  Receive Date: 20141029
  Receipt Date: 20141029
  Transmission Date: 20150529
  Serious: Yes (Other)
  Sender: FDA-Public Use
  Company Number: None

PATIENT
  Age: 51 Year
  Sex: Female
  Weight: 137.89 kg

DRUGS (1)
  1. FLECTOR [Suspect]
     Active Substance: DICLOFENAC EPOLAMINE
     Indication: INFLAMMATION
     Dosage: 1 10CM X 14CM EVERY 12 HOURS, ONCE DAILY, APPLIED AS MEDICATED PATCH TO SKIN
     Dates: start: 20120531, end: 20141027

REACTIONS (4)
  - Blood pressure increased [None]
  - Dizziness [None]
  - Headache [None]
  - Dysphemia [None]

NARRATIVE: CASE EVENT DATE: 20141027
